FAERS Safety Report 18045600 (Version 2)
Quarter: 2020Q3

REPORT INFORMATION
  Report Type: Spontaneous
  Country: IT (occurrence: IT)
  Receive Date: 20200720
  Receipt Date: 20200731
  Transmission Date: 20201103
  Serious: Yes (Other)
  Sender: FDA-Public Use
  Company Number: IT-MYLANLABS-2020M1064249

PATIENT
  Age: 15 Year
  Sex: Male
  Weight: 124 kg

DRUGS (1)
  1. ARIPIPRAZOLE. [Suspect]
     Active Substance: ARIPIPRAZOLE
     Indication: OBSESSIVE-COMPULSIVE DISORDER
     Dosage: 15 MILLIGRAM, QD
     Route: 048
     Dates: start: 20200613

REACTIONS (5)
  - Tremor [Recovered/Resolved]
  - Tongue discolouration [Recovered/Resolved]
  - Off label use [Recovered/Resolved]
  - Dystonia [Recovered/Resolved]
  - Oromandibular dystonia [Recovered/Resolved]

NARRATIVE: CASE EVENT DATE: 20200613
